FAERS Safety Report 10097081 (Version 2)
Quarter: 2015Q3

REPORT INFORMATION
  Report Type: Spontaneous
  Country: US (occurrence: US)
  Receive Date: 20140422
  Receipt Date: 20150813
  Transmission Date: 20151125
  Serious: No
  Sender: FDA-Public Use
  Company Number: US-GILEAD-2012-0065855

PATIENT
  Age: 82 Year
  Sex: Female

DRUGS (12)
  1. ATORVASTATIN [Concomitant]
     Active Substance: ATORVASTATIN
     Indication: BLOOD CHOLESTEROL
     Dosage: 40 MG, UNK
     Dates: start: 20080101
  2. POTASSIUM CHLORIDE. [Concomitant]
     Active Substance: POTASSIUM CHLORIDE
     Indication: BLOOD POTASSIUM DECREASED
     Dosage: 10 MEQ, BID
     Dates: start: 20080101
  3. LETAIRIS [Suspect]
     Active Substance: AMBRISENTAN
     Indication: PULMONARY HYPERTENSION
     Dosage: 5 MG, QD
     Route: 048
     Dates: start: 20121114
  4. COUMADIN [Concomitant]
     Active Substance: WARFARIN SODIUM
     Indication: ANTICOAGULANT THERAPY
     Dosage: 5 MG, QD
     Dates: start: 20080101
  5. ATENOLOL. [Concomitant]
     Active Substance: ATENOLOL
     Indication: UNEVALUABLE EVENT
     Dosage: 50 MG, UNK
     Dates: start: 20080101
  6. METOLAZONE. [Concomitant]
     Active Substance: METOLAZONE
     Indication: UNEVALUABLE EVENT
     Dosage: 2.5 MG, UNK
     Dates: start: 20080101
  7. ANASTROZOLE. [Concomitant]
     Active Substance: ANASTROZOLE
     Indication: UNEVALUABLE EVENT
     Dosage: 1 MG, QD
     Dates: start: 20080101
  8. DIOVAN [Concomitant]
     Active Substance: VALSARTAN
     Indication: UNEVALUABLE EVENT
     Dosage: 50 MG, QD
     Dates: start: 20080101
  9. PRIMIDONE. [Concomitant]
     Active Substance: PRIMIDONE
     Indication: DRUG THERAPY
     Dosage: 50 MG, TID
     Dates: start: 20080101
  10. CENTRUM SILVER                     /02363801/ [Concomitant]
     Active Substance: VITAMINS
     Indication: SUPPLEMENTATION THERAPY
     Dosage: 1 MG, QD
     Dates: start: 20080101
  11. CARTIA XT [Concomitant]
     Active Substance: DILTIAZEM HYDROCHLORIDE
     Indication: UNEVALUABLE EVENT
     Dosage: 360 MG, QD
     Dates: start: 20080101
  12. FUROSEMIDE. [Concomitant]
     Active Substance: FUROSEMIDE
     Indication: UNEVALUABLE EVENT
     Dosage: 80 MG, QD
     Dates: start: 20080101

REACTIONS (1)
  - Oedema peripheral [Not Recovered/Not Resolved]

NARRATIVE: CASE EVENT DATE: 20121121
